FAERS Safety Report 21282921 (Version 11)
Quarter: 2024Q1

REPORT INFORMATION
  Report Type: Report from Study
  Country: US (occurrence: US)
  Receive Date: 20220901
  Receipt Date: 20240322
  Transmission Date: 20240409
  Serious: Yes (Hospitalization, Other)
  Sender: FDA-Public Use
  Company Number: US-TAKEDA-US202034378

PATIENT
  Age: 68 Year
  Sex: Female

DRUGS (3)
  1. HUMAN IMMUNOGLOBULIN G [Suspect]
     Active Substance: HUMAN IMMUNOGLOBULIN G
     Indication: Primary immunodeficiency syndrome
     Dosage: UNK
     Route: 042
  2. HUMAN IMMUNOGLOBULIN G [Suspect]
     Active Substance: HUMAN IMMUNOGLOBULIN G
     Indication: Immunodeficiency common variable
  3. IRON [Concomitant]
     Active Substance: IRON
     Dosage: UNK
     Route: 065

REACTIONS (21)
  - Hip fracture [Unknown]
  - Pneumonia [Unknown]
  - Localised infection [Unknown]
  - Blood potassium decreased [Unknown]
  - Respiratory syncytial virus infection [Unknown]
  - Rib fracture [Unknown]
  - Autoimmune disorder [Unknown]
  - Haematoma [Unknown]
  - Vision blurred [Unknown]
  - Ear infection [Unknown]
  - Limb injury [Unknown]
  - Fall [Unknown]
  - COVID-19 [Unknown]
  - Muscle strain [Unknown]
  - Skin ulcer [Unknown]
  - Pain [Unknown]
  - Balance disorder [Unknown]
  - Malaise [Unknown]
  - Cough [Unknown]
  - Dizziness [Unknown]
  - Inappropriate schedule of product administration [Unknown]

NARRATIVE: CASE EVENT DATE: 20240318
